FAERS Safety Report 25934824 (Version 1)
Quarter: 2025Q4

REPORT INFORMATION
  Report Type: Spontaneous
  Country: JP (occurrence: JP)
  Receive Date: 20251017
  Receipt Date: 20251017
  Transmission Date: 20260118
  Serious: Yes (Other)
  Sender: RANBAXY
  Company Number: JP-SUN PHARMACEUTICAL INDUSTRIES LTD-2025RR-532355

PATIENT
  Age: 65 Year
  Sex: Male

DRUGS (3)
  1. OXALIPLATIN [Suspect]
     Active Substance: OXALIPLATIN
     Indication: Gastric cancer
     Dosage: 65 MILLIGRAM/SQ. METER
     Route: 042
     Dates: start: 202402
  2. LEUCOVORIN CALCIUM [Suspect]
     Active Substance: LEUCOVORIN CALCIUM
     Indication: Gastric cancer
     Dosage: 200 MILLIGRAM/SQ. METER, 2H
     Route: 042
  3. FLUOROURACIL [Suspect]
     Active Substance: FLUOROURACIL
     Indication: Gastric cancer
     Dosage: 2000 MILLIGRAM/SQ. METER, FORTNIGHT
     Route: 042

REACTIONS (5)
  - Decreased appetite [Unknown]
  - Fatigue [Unknown]
  - Thrombocytopenia [Unknown]
  - Purpura [Unknown]
  - Neoplasm progression [Unknown]
